FAERS Safety Report 9255413 (Version 2)
Quarter: 2014Q2

REPORT INFORMATION
  Report Type: Spontaneous
  Country: US (occurrence: US)
  Receive Date: 20130425
  Receipt Date: 20140422
  Transmission Date: 20141212
  Serious: Yes (Death, Other)
  Sender: FDA-Public Use
  Company Number: US-BRISTOL-MYERS SQUIBB COMPANY-17068370

PATIENT
  Age: 72 Year
  Sex: Female

DRUGS (3)
  1. HYDREA [Suspect]
     Indication: ESSENTIAL THROMBOCYTHAEMIA
     Route: 065
     Dates: end: 201208
  2. TARCEVA [Suspect]
     Indication: PANCREATIC CARCINOMA
     Dosage: TABS
     Route: 048
     Dates: end: 20120822
  3. GEMZAR [Suspect]
     Dosage: TAKEN ON DAY 1, DAY 8
     Dates: start: 20120816, end: 20120816

REACTIONS (4)
  - Malignant neoplasm progression [Fatal]
  - Metastases to liver [Unknown]
  - Platelet count decreased [Unknown]
  - Haemoglobin decreased [Unknown]
